FAERS Safety Report 24791858 (Version 2)
Quarter: 2025Q1

REPORT INFORMATION
  Report Type: Report from Study
  Country: US (occurrence: US)
  Receive Date: 20241231
  Receipt Date: 20250108
  Transmission Date: 20250408
  Serious: Yes (Hospitalization)
  Sender: ACADIA PHARMACEUTICALS
  Company Number: US-ACADIA PHARMACEUTICALS INC.-ACA-2024-PIM-008833

PATIENT
  Age: 70 Year
  Sex: Male

DRUGS (15)
  1. NUPLAZID [Suspect]
     Active Substance: PIMAVANSERIN TARTRATE
     Indication: Hallucination
     Dosage: 34 MILLIGRAM, QD
     Route: 048
     Dates: start: 20241204
  2. NUPLAZID [Suspect]
     Active Substance: PIMAVANSERIN TARTRATE
     Indication: Parkinson^s disease
  3. VITAMINS NOS [Concomitant]
     Active Substance: VITAMINS
  4. VITAMIN C [Concomitant]
     Active Substance: ASCORBIC ACID
  5. IBUPROFEN [Concomitant]
     Active Substance: IBUPROFEN
  6. AUGMENTIN [Concomitant]
     Active Substance: AMOXICILLIN\CLAVULANATE POTASSIUM
  7. CARBIDOPA LEVODOPA [Concomitant]
     Active Substance: CARBIDOPA\LEVODOPA
  8. AMANTADINE [Concomitant]
     Active Substance: AMANTADINE
  9. BACLOFEN [Concomitant]
     Active Substance: BACLOFEN
  10. MELOXICAM [Concomitant]
     Active Substance: MELOXICAM
  11. ONGENTYS [Concomitant]
     Active Substance: OPICAPONE
  12. RASAGILINE [Concomitant]
     Active Substance: RASAGILINE
  13. ROPINIROLE [Concomitant]
     Active Substance: ROPINIROLE
  14. MORNIFLUMATE [Concomitant]
     Active Substance: MORNIFLUMATE
  15. ZONISAMIDE [Concomitant]
     Active Substance: ZONISAMIDE

REACTIONS (2)
  - Urinary tract infection [Recovered/Resolved]
  - Condition aggravated [Recovered/Resolved]

NARRATIVE: CASE EVENT DATE: 20241213
